FAERS Safety Report 24109518 (Version 7)
Quarter: 2024Q4

REPORT INFORMATION
  Report Type: Spontaneous
  Country: PT (occurrence: PT)
  Receive Date: 20240718
  Receipt Date: 20241015
  Transmission Date: 20250115
  Serious: Yes (Life-Threatening, Hospitalization, Other)
  Sender: AUROBINDO
  Company Number: PT-AZEVEDOSP-2024-00300

PATIENT
  Age: 20 Year
  Sex: Female

DRUGS (3)
  1. ACETAMINOPHEN [Interacting]
     Active Substance: ACETAMINOPHEN
     Indication: Binge drinking
     Dosage: 3 GRAM, ONCE A DAY (3 G/DAY, 3X/WEEK AFTER ALCOHOL CONSUMPTION)
     Route: 065
  2. ALCOHOL [Suspect]
     Active Substance: ALCOHOL
     Indication: Product used for unknown indication
     Dosage: UNK
     Route: 065
  3. CANNABIDIOL\HERBALS\TETRAHYDROCANNABINOL UNSPECIFIED [Suspect]
     Active Substance: CANNABIDIOL\HERBALS\TETRAHYDROCANNABINOL UNSPECIFIED
     Indication: Product used for unknown indication
     Dosage: OCCASIONAL USE OF CANNABINOIDS
     Route: 065

REACTIONS (20)
  - Acute hepatic failure [Recovering/Resolving]
  - Hepatitis acute [Recovering/Resolving]
  - Hepatic failure [Recovered/Resolved]
  - Overdose [Unknown]
  - Pyrexia [Recovering/Resolving]
  - Weight decreased [Recovering/Resolving]
  - Drug interaction [Recovering/Resolving]
  - Vomiting [Recovering/Resolving]
  - Abdominal pain [Recovering/Resolving]
  - Drug level increased [Unknown]
  - Coagulopathy [Recovering/Resolving]
  - Encephalopathy [Recovering/Resolving]
  - Hyperammonaemia [Recovering/Resolving]
  - Hypoalbuminaemia [Unknown]
  - Hepatic cytolysis [Recovering/Resolving]
  - Gingival bleeding [Recovering/Resolving]
  - Pyrexia [Recovering/Resolving]
  - Anorexia nervosa [Unknown]
  - Intentional product misuse [Unknown]
  - Labelled drug-food interaction issue [Unknown]
